FAERS Safety Report 25018450 (Version 1)
Quarter: 2025Q1

REPORT INFORMATION
  Report Type: Spontaneous
  Country: US (occurrence: US)
  Receive Date: 20250227
  Receipt Date: 20250227
  Transmission Date: 20250409
  Serious: No
  Sender: AVADEL CNS PHARMACEUTICALS, LLC
  Company Number: US-AVADEL CNS PHARMACEUTICALS, LLC-2024AVA02357

PATIENT
  Sex: Male
  Weight: 116.19 kg

DRUGS (17)
  1. LUMRYZ [Suspect]
     Active Substance: SODIUM OXYBATE
     Indication: Narcolepsy
     Dates: start: 202409, end: 2024
  2. LUMRYZ [Suspect]
     Active Substance: SODIUM OXYBATE
     Indication: Somnolence
     Dosage: 9 G, ONCE NIGHTLY
     Dates: start: 2024
  3. PROVIGIL [Concomitant]
     Active Substance: MODAFINIL
  4. FISH OIL [Concomitant]
     Active Substance: FISH OIL
  5. VITAMINS NOS [Concomitant]
     Active Substance: VITAMINS
  6. CALCIUM [Concomitant]
     Active Substance: CALCIUM
  7. MAGNESIUM [Concomitant]
     Active Substance: MAGNESIUM
  8. ZINC [Concomitant]
     Active Substance: ZINC
  9. VITAMIN D3 [Concomitant]
     Active Substance: CHOLECALCIFEROL
  10. MENAQUINONE 6 [Concomitant]
     Active Substance: MENAQUINONE 6
  11. IMMUNE SYSTEM MULTIVITAMIN WITH B12 AND C [Concomitant]
  12. ASPIRIN [Concomitant]
     Active Substance: ASPIRIN
  13. CAL MAG ZINC [Concomitant]
  14. HERBALS\TURMERIC [Concomitant]
     Active Substance: HERBALS\TURMERIC
  15. ATORVASTATIN CALCIUM [Concomitant]
     Active Substance: ATORVASTATIN CALCIUM
  16. MODAFINIL [Concomitant]
     Active Substance: MODAFINIL
  17. IMMUNE SUPPORT [ANDROGRAPHIS PANICULATA;ECHINACEA PURPUREA ROOT;OLEA E [Concomitant]

REACTIONS (3)
  - Heart rate increased [Not Recovered/Not Resolved]
  - Dry mouth [Not Recovered/Not Resolved]
  - Blood pressure increased [Not Recovered/Not Resolved]

NARRATIVE: CASE EVENT DATE: 20240101
